FAERS Safety Report 7366784-8 (Version None)
Quarter: 2011Q1

REPORT INFORMATION
  Report Type: 
  Country: None (occurrence: None)
  Receive Date: 20110311
  Receipt Date: 20110228
  Transmission Date: 20110831
  Serious: Yes (Hospitalization)
  Sender: FDA-Public Use
  Company Number: 028350

PATIENT
  Age: 62 Year
  Sex: Female

DRUGS (2)
  1. CORTISONE [Concomitant]
  2. KEPPRA [Suspect]
     Indication: PARTIAL SEIZURES
     Dosage: 1500 MG BID, 1500-0-1500MG
     Dates: start: 20100501

REACTIONS (6)
  - ASTHENIA [None]
  - TREMOR [None]
  - DISTURBANCE IN ATTENTION [None]
  - PARKINSON'S DISEASE [None]
  - HALLUCINATIONS, MIXED [None]
  - PARKINSONIAN GAIT [None]
